FAERS Safety Report 10136501 (Version 1)
Quarter: 2014Q2

REPORT INFORMATION
  Report Type: Spontaneous
  Country: US (occurrence: None)
  Receive Date: 20140425
  Receipt Date: 20140425
  Transmission Date: 20141212
  Serious: Yes (Disabling, Other)
  Sender: FDA-Public Use
  Company Number: None

PATIENT
  Age: 50 Year
  Sex: Female
  Weight: 92.99 kg

DRUGS (2)
  1. HYDROCORTISONE [Suspect]
     Indication: HYPOPITUITARISM
     Dosage: 4 TABS IN A.M, 1 TAB AT P.M, TWICE DAILY, TAKEN BY MOUTH
     Route: 048
  2. CORTEF [Suspect]
     Indication: HYPOPITUITARISM
     Dosage: 4 TABS Q A.M, 1 TAB Q P.M TWICE DAILY TAKEN BY MOUTH
     Route: 048
     Dates: start: 20140305, end: 20140405

REACTIONS (3)
  - Headache [None]
  - Asthma [None]
  - Feeling cold [None]
